FAERS Safety Report 8723304 (Version 3)
Quarter: 2016Q4

REPORT INFORMATION
  Report Type: Spontaneous
  Country: IN (occurrence: IN)
  Receive Date: 20120814
  Receipt Date: 20161228
  Transmission Date: 20170207
  Serious: Yes (Hospitalization)
  Sender: FDA-Public Use
  Company Number: IN-PFIZER INC-2012195647

PATIENT
  Age: 11 Month
  Sex: Male
  Weight: 6 kg

DRUGS (1)
  1. AMLODIPINE BESILATE [Suspect]
     Active Substance: AMLODIPINE BESYLATE
     Dosage: 15 MG, 3X/DAY (6 DOSES)

REACTIONS (9)
  - Vomiting [Recovering/Resolving]
  - Drug dispensing error [Recovering/Resolving]
  - Shock [Recovering/Resolving]
  - Accidental overdose [Recovering/Resolving]
  - Renal failure [Recovering/Resolving]
  - Cardiac failure congestive [Recovering/Resolving]
  - Loss of consciousness [Recovering/Resolving]
  - Metabolic acidosis [Recovering/Resolving]
  - Hyperglycaemia [Recovering/Resolving]
